FAERS Safety Report 16176399 (Version 2)
Quarter: 2019Q2

REPORT INFORMATION
  Report Type: Spontaneous
  Country: US (occurrence: US)
  Receive Date: 20190409
  Receipt Date: 20190412
  Transmission Date: 20190711
  Serious: Yes (Other)
  Sender: FDA-Public Use
  Company Number: US-SUNOVION-2019SUN001376

PATIENT
  Sex: Male
  Weight: 103.86 kg

DRUGS (4)
  1. LATUDA [Suspect]
     Active Substance: LURASIDONE HYDROCHLORIDE
     Indication: AUTISM SPECTRUM DISORDER
     Dosage: 10 MG, QD
     Route: 048
     Dates: start: 201903
  2. PROPRANOLOL HCL [Concomitant]
     Active Substance: PROPRANOLOL HYDROCHLORIDE
     Indication: HYPOTENSION
  3. LATUDA [Suspect]
     Active Substance: LURASIDONE HYDROCHLORIDE
     Indication: MOOD SWINGS
     Dosage: 20 MG, QD
     Route: 048
     Dates: start: 201903
  4. PROPRANOLOL HCL [Concomitant]
     Active Substance: PROPRANOLOL HYDROCHLORIDE
     Indication: MIGRAINE
     Dosage: 30 MG, BID
     Route: 048

REACTIONS (15)
  - Aggression [Not Recovered/Not Resolved]
  - Affect lability [Unknown]
  - Dehydration [Unknown]
  - Diarrhoea [Unknown]
  - Pyrexia [Not Recovered/Not Resolved]
  - Bipolar disorder [Unknown]
  - Autism spectrum disorder [Unknown]
  - Emotional disorder [Unknown]
  - Irritability [Unknown]
  - Off label use [Unknown]
  - Flushing [Not Recovered/Not Resolved]
  - Feeling hot [Unknown]
  - Thirst [Not Recovered/Not Resolved]
  - Mood swings [Unknown]
  - Drug ineffective for unapproved indication [Unknown]
